FAERS Safety Report 21949280 (Version 1)
Quarter: 2023Q1

REPORT INFORMATION
  Report Type: Spontaneous
  Country: CN (occurrence: CN)
  Receive Date: 20230203
  Receipt Date: 20230203
  Transmission Date: 20230417
  Serious: Yes (Hospitalization, Other)
  Sender: FDA-Public Use
  Company Number: CN-MLMSERVICE-20230123-4058475-1

PATIENT
  Age: 45 Year
  Sex: Male

DRUGS (3)
  1. TACROLIMUS [Suspect]
     Active Substance: TACROLIMUS
     Indication: Vasculitis
     Dosage: INTERMITTENT THERAPY
  2. CYCLOPHOSPHAMIDE [Suspect]
     Active Substance: CYCLOPHOSPHAMIDE
     Indication: Vasculitis
     Dosage: INTERMITTENT THERAPY
  3. PREDNISONE [Suspect]
     Active Substance: PREDNISONE
     Indication: Vasculitis
     Dosage: INTERMITTENT THERAPY

REACTIONS (6)
  - Hydronephrosis [Recovering/Resolving]
  - Pyelitis [Not Recovered/Not Resolved]
  - Ureteric stenosis [Recovering/Resolving]
  - Nephrolithiasis [Recovering/Resolving]
  - Urinary tract infection staphylococcal [Recovered/Resolved]
  - Ureterolithiasis [Recovering/Resolving]
